FAERS Safety Report 7659640-9 (Version None)
Quarter: 2011Q3

REPORT INFORMATION
  Report Type: 
  Country: None (occurrence: None)
  Receive Date: 20110805
  Receipt Date: 20110802
  Transmission Date: 20111222
  Serious: Yes (Hospitalization)
  Sender: FDA-Public Use
  Company Number: AU-ABBOTT-11P-008-0837036-00

PATIENT
  Sex: Female
  Weight: 50 kg

DRUGS (2)
  1. HUMIRA [Suspect]
     Indication: PSORIATIC ARTHROPATHY
     Dates: start: 20091101, end: 20110630
  2. METHOTREXATE [Concomitant]
     Indication: PRODUCT USED FOR UNKNOWN INDICATION
     Dates: end: 20110501

REACTIONS (13)
  - RASH PRURITIC [None]
  - PRURITUS GENERALISED [None]
  - NEUTROPENIA [None]
  - RASH MACULAR [None]
  - LICHENIFICATION [None]
  - INFLUENZA [None]
  - TOXICITY TO VARIOUS AGENTS [None]
  - RASH [None]
  - DRY SKIN [None]
  - SWELLING FACE [None]
  - ADVERSE DRUG REACTION [None]
  - SCAR [None]
  - RASH VESICULAR [None]
